FAERS Safety Report 10725309 (Version 2)
Quarter: 2015Q1

REPORT INFORMATION
  Report Type: Spontaneous
  Country: US (occurrence: US)
  Receive Date: 20150120
  Receipt Date: 20150311
  Transmission Date: 20150721
  Serious: Yes (Other)
  Sender: FDA-Public Use
  Company Number: US-AMGEN INC.-USASP2015003951

PATIENT
  Age: 14 Year
  Sex: Female
  Weight: 42.6 kg

DRUGS (7)
  1. RIFAMPIN. [Suspect]
     Active Substance: RIFAMPIN
     Indication: LATENT TUBERCULOSIS
     Dosage: 450 MG, DAILY
     Route: 048
     Dates: start: 20150127, end: 20150213
  2. METHOTREXATE [Suspect]
     Active Substance: METHOTREXATE
     Indication: JUVENILE IDIOPATHIC ARTHRITIS
     Dosage: 20 MG, QWK
     Route: 058
     Dates: start: 20140922, end: 20141223
  3. ISONIAZID. [Suspect]
     Active Substance: ISONIAZID
     Indication: LATENT TUBERCULOSIS
     Dosage: 200 MG, DAILY
     Route: 048
     Dates: start: 20141010, end: 20141223
  4. TYLENOL [Concomitant]
     Active Substance: ACETAMINOPHEN
     Indication: JUVENILE IDIOPATHIC ARTHRITIS
  5. NAPROXEN. [Concomitant]
     Active Substance: NAPROXEN
     Indication: JUVENILE IDIOPATHIC ARTHRITIS
     Dosage: 375 MG, BID
     Route: 048
     Dates: start: 20140826
  6. ENBREL [Suspect]
     Active Substance: ETANERCEPT
     Indication: RHEUMATOID ARTHRITIS
     Dosage: 15 MG, 2 TIMES/WK
     Route: 058
     Dates: start: 20141017, end: 20150213
  7. TYLENOL [Concomitant]
     Active Substance: ACETAMINOPHEN
     Indication: PAIN
     Dosage: UNK (1 TABLET PRN)
     Route: 048
     Dates: start: 20150126

REACTIONS (4)
  - Neutropenia [Not Recovered/Not Resolved]
  - Hepatitis [Recovered/Resolved]
  - Rash [Unknown]
  - Hypersensitivity [Unknown]

NARRATIVE: CASE EVENT DATE: 20141223
